FAERS Safety Report 14692822 (Version 1)
Quarter: 2018Q1

REPORT INFORMATION
  Report Type: Spontaneous
  Country: US (occurrence: US)
  Receive Date: 20180329
  Receipt Date: 20180329
  Transmission Date: 20180509
  Serious: Yes (Other)
  Sender: FDA-Public Use
  Company Number: US-009507513-1803USA010395

PATIENT
  Age: 29 Year
  Sex: Female

DRUGS (1)
  1. NEXPLANON [Suspect]
     Active Substance: ETONOGESTREL
     Indication: MIGRAINE WITH AURA
     Dosage: 1 DF, UNK
     Route: 059
     Dates: start: 201601

REACTIONS (2)
  - Product use in unapproved indication [Unknown]
  - Coeliac disease [Recovering/Resolving]

NARRATIVE: CASE EVENT DATE: 201601
